FAERS Safety Report 14542439 (Version 1)
Quarter: 2018Q1

REPORT INFORMATION
  Report Type: Spontaneous
  Country: ES (occurrence: ES)
  Receive Date: 20180216
  Receipt Date: 20180216
  Transmission Date: 20180509
  Serious: Yes (Other)
  Sender: FDA-Public Use
  Company Number: ES-OTSUKA-DJ201403039

PATIENT
  Age: 30 Year
  Sex: Female

DRUGS (3)
  1. MAGNESIUM [Concomitant]
     Active Substance: MAGNESIUM
     Route: 065
  2. ABILIFY [Suspect]
     Active Substance: ARIPIPRAZOLE
     Indication: ANXIETY
     Route: 048
  3. GINKGO BILOBA [Concomitant]
     Active Substance: GINKGO
     Route: 065

REACTIONS (7)
  - Asthenia [Unknown]
  - Dizziness [Unknown]
  - Psychotic disorder [Unknown]
  - Food craving [Unknown]
  - Amnesia [Unknown]
  - Off label use [Unknown]
  - Malaise [Unknown]
